FAERS Safety Report 18062081 (Version 1)
Quarter: 2020Q3

REPORT INFORMATION
  Report Type: Other
  Country: DE (occurrence: DE)
  Receive Date: 20200723
  Receipt Date: 20200723
  Transmission Date: 20201103
  Serious: Yes (Life-Threatening, Hospitalization)
  Sender: FDA-Public Use
  Company Number: DE-NOSTRUM LABORATORIES, INC.-2087660

PATIENT
  Age: 30 Year
  Sex: Male

DRUGS (2)
  1. RIVAROXABAN [Interacting]
     Active Substance: RIVAROXABAN
     Route: 048
  2. VALPROIC ACID SOLUTION 250 MG/5 ML [Suspect]
     Active Substance: VALPROIC ACID
     Indication: EPILEPSY
     Route: 048

REACTIONS (2)
  - Drug interaction [Recovered/Resolved]
  - Deep vein thrombosis [Recovered/Resolved]
